FAERS Safety Report 15935517 (Version 1)
Quarter: 2019Q1

REPORT INFORMATION
  Report Type: Spontaneous
  Country: US (occurrence: US)
  Receive Date: 20190208
  Receipt Date: 20190208
  Transmission Date: 20190417
  Serious: No
  Sender: FDA-Public Use
  Company Number: US-TEVA-2019-US-997606

PATIENT
  Age: 16 Year
  Sex: Female

DRUGS (1)
  1. TRI-SPRINTEC [Suspect]
     Active Substance: ETHINYL ESTRADIOL\NORGESTIMATE
     Dates: start: 201812

REACTIONS (5)
  - Muscle spasms [Unknown]
  - Product substitution issue [Unknown]
  - Irritability [Unknown]
  - Mood altered [Unknown]
  - Migraine [Unknown]

NARRATIVE: CASE EVENT DATE: 201812
